FAERS Safety Report 5298737-8 (Version None)
Quarter: 2007Q2

REPORT INFORMATION
  Report Type: 
  Country: None (occurrence: None)
  Receive Date: 20070417
  Receipt Date: 20070410
  Transmission Date: 20071010
  Serious: Yes (Other)
  Sender: FDA-Public Use
  Company Number: US-JNJFOC-20070402459

PATIENT
  Age: 5 Decade
  Sex: Male

DRUGS (1)
  1. DURAGESIC-100 [Suspect]
     Indication: BACK PAIN
     Dosage: TWO 100 UG/HR AND 50 UG/HR PATCHES
     Route: 062

REACTIONS (3)
  - BENIGN BREAST NEOPLASM [None]
  - INCORRECT DRUG ADMINISTRATION DURATION [None]
  - MASTECTOMY [None]
